FAERS Safety Report 8471729-3 (Version None)
Quarter: 2012Q2

REPORT INFORMATION
  Report Type: 
  Country: None (occurrence: None)
  Receive Date: 20120627
  Receipt Date: 20120620
  Transmission Date: 20120825
  Serious: Yes (Other)
  Sender: FDA-Public Use
  Company Number: CH-GLAXOSMITHKLINE-B0810605A

PATIENT
  Age: 83 Year
  Sex: Female

DRUGS (8)
  1. BONIVA [Concomitant]
  2. PREDNISONE TAB [Concomitant]
     Dosage: 17.5MG THREE TIMES PER WEEK
     Route: 048
     Dates: start: 20120301
  3. CALCIMAGON-D3 [Concomitant]
  4. PANTOPRAZOLE [Concomitant]
  5. PROMACTA [Suspect]
     Indication: PRODUCT USED FOR UNKNOWN INDICATION
     Dosage: 25MG THREE TIMES PER WEEK
     Route: 048
     Dates: start: 20120401
  6. DIOVAN HCT [Concomitant]
     Route: 048
  7. COLECALCIFEROL [Concomitant]
  8. FOLIC ACID [Concomitant]

REACTIONS (1)
  - DEEP VEIN THROMBOSIS [None]
